FAERS Safety Report 7731468-0 (Version None)
Quarter: 2011Q3

REPORT INFORMATION
  Report Type: 
  Country: None (occurrence: None)
  Receive Date: 20110906
  Receipt Date: 20110602
  Transmission Date: 20111222
  Serious: No
  Sender: FDA-Public Use
  Company Number: US-AMGEN-USASP2011028505

PATIENT
  Sex: Female

DRUGS (3)
  1. CALCIUM +VIT D [Concomitant]
  2. PROLIA [Suspect]
     Indication: OSTEOPOROSIS POSTMENOPAUSAL
     Dates: start: 20101201
  3. OTHER CARDIAC PREPARATIONS [Concomitant]

REACTIONS (2)
  - MYALGIA [None]
  - ABDOMINAL PAIN [None]
